FAERS Safety Report 10046774 (Version 2)
Quarter: 2014Q2

REPORT INFORMATION
  Report Type: Spontaneous
  Country: JP (occurrence: JP)
  Receive Date: 20140331
  Receipt Date: 20140521
  Transmission Date: 20141212
  Serious: Yes (Hospitalization)
  Sender: FDA-Public Use
  Company Number: PHHY2014JP038292

PATIENT
  Sex: 0

DRUGS (1)
  1. RIVASTIGMIN [Suspect]
     Indication: DEMENTIA ALZHEIMER^S TYPE
     Dosage: 4.6MG/24 HOURS (9 MG, DAILY)
     Route: 062

REACTIONS (2)
  - Compression fracture [Unknown]
  - Pruritus [Recovering/Resolving]
